FAERS Safety Report 16646293 (Version 1)
Quarter: 2019Q3

REPORT INFORMATION
  Report Type: Other
  Country: CM (occurrence: CM)
  Receive Date: 20190730
  Receipt Date: 20190730
  Transmission Date: 20191004
  Serious: Yes (Disabling, Other)
  Sender: FDA-Public Use
  Company Number: CM-DEXPHARM-20190587

PATIENT
  Age: 58 Year
  Sex: Female

DRUGS (1)
  1. DICLOFENAC [Suspect]
     Active Substance: DICLOFENAC
     Indication: ARTHRALGIA
     Route: 030

REACTIONS (2)
  - Peripheral ischaemia [Recovered/Resolved with Sequelae]
  - Embolia cutis medicamentosa [Recovered/Resolved with Sequelae]
